FAERS Safety Report 20649220 (Version 10)
Quarter: 2025Q3

REPORT INFORMATION
  Report Type: Spontaneous
  Country: IN (occurrence: IN)
  Receive Date: 20220329
  Receipt Date: 20250805
  Transmission Date: 20251020
  Serious: Yes (Other)
  Sender: PFIZER
  Company Number: IN-PFIZER INC-202200445492

PATIENT
  Age: 69 Year
  Sex: Female

DRUGS (10)
  1. PALBOCICLIB [Suspect]
     Active Substance: PALBOCICLIB
     Route: 048
     Dates: start: 20220110, end: 2022
  2. PALBOCICLIB [Suspect]
     Active Substance: PALBOCICLIB
     Route: 048
     Dates: start: 2022, end: 2022
  3. PALBOCICLIB [Suspect]
     Active Substance: PALBOCICLIB
     Route: 048
     Dates: start: 20220314
  4. PALBOCICLIB [Suspect]
     Active Substance: PALBOCICLIB
     Route: 048
     Dates: start: 20250303
  5. LETROZOLE [Concomitant]
     Active Substance: LETROZOLE
  6. LETROZOLE [Concomitant]
     Active Substance: LETROZOLE
  7. LETROZOLE [Concomitant]
     Active Substance: LETROZOLE
  8. CALCIUM\CHOLECALCIFEROL [Concomitant]
     Active Substance: CALCIUM\CHOLECALCIFEROL
  9. DENOSUMAB [Concomitant]
     Active Substance: DENOSUMAB
     Route: 058
  10. ALPRAZOLAM [Concomitant]
     Active Substance: ALPRAZOLAM

REACTIONS (8)
  - Myelosuppression [Unknown]
  - White blood cell count decreased [Unknown]
  - Asthenia [Unknown]
  - Fatigue [Unknown]
  - Back pain [Unknown]
  - Insomnia [Unknown]
  - Hypertransaminasaemia [Recovered/Resolved]
  - Off label use [Unknown]

NARRATIVE: CASE EVENT DATE: 20220101
